FAERS Safety Report 11427293 (Version 1)
Quarter: 2015Q3

REPORT INFORMATION
  Report Type: Spontaneous
  Country: US (occurrence: US)
  Receive Date: 20150827
  Receipt Date: 20150827
  Transmission Date: 20151125
  Serious: No
  Sender: FDA-Public Use
  Company Number: US-SA-2014SA146712

PATIENT
  Age: 50 Year
  Sex: Female
  Weight: 104.32 kg

DRUGS (25)
  1. DIVIGEL [Concomitant]
     Active Substance: ESTRADIOL
  2. AMLODIPINE [Concomitant]
     Active Substance: AMLODIPINE BESYLATE
  3. SIMETHICONE (DIMETHICONE) [Concomitant]
     Active Substance: DIMETHICONE
  4. LOSARTAN. [Concomitant]
     Active Substance: LOSARTAN
  5. SENNA [Concomitant]
     Active Substance: SENNA LEAF\SENNOSIDES\SENNOSIDES A AND B
  6. NORVASC [Concomitant]
     Active Substance: AMLODIPINE BESYLATE
  7. WATER. [Concomitant]
     Active Substance: WATER
  8. LIDOCAINE. [Concomitant]
     Active Substance: LIDOCAINE
  9. TUMS [Concomitant]
     Active Substance: CALCIUM CARBONATE
  10. SYNTHROID [Concomitant]
     Active Substance: LEVOTHYROXINE SODIUM
  11. IBUPROFEN. [Concomitant]
     Active Substance: IBUPROFEN
  12. EPIPEN [Concomitant]
     Active Substance: EPINEPHRINE
  13. SOLU-MEDROL [Concomitant]
     Active Substance: METHYLPREDNISOLONE SODIUM SUCCINATE
  14. ASPIRIN. [Concomitant]
     Active Substance: ASPIRIN
  15. NORMAL SALINE [Concomitant]
     Active Substance: SODIUM CHLORIDE
  16. CYMBALTA [Concomitant]
     Active Substance: DULOXETINE HYDROCHLORIDE
  17. VALTREX [Concomitant]
     Active Substance: VALACYCLOVIR HYDROCHLORIDE
  18. FABRAZYME [Suspect]
     Active Substance: AGALSIDASE BETA
     Indication: FABRY^S DISEASE
     Route: 041
     Dates: start: 20130425
  19. GENERAL NUTRIENTS [Concomitant]
  20. OMEPRAZOLE. [Concomitant]
     Active Substance: OMEPRAZOLE
  21. DIPHENHYDRAMINE. [Concomitant]
     Active Substance: DIPHENHYDRAMINE
  22. SODIUM CHLORIDE. [Concomitant]
     Active Substance: SODIUM CHLORIDE
  23. ZYRTEC [Concomitant]
     Active Substance: CETIRIZINE HYDROCHLORIDE
  24. LEVOTHYROXINE. [Concomitant]
     Active Substance: LEVOTHYROXINE
  25. PHENYLEPHRINE [Concomitant]
     Active Substance: PHENYLEPHRINE\PHENYLEPHRINE HYDROCHLORIDE

REACTIONS (1)
  - Headache [Recovered/Resolved]
